FAERS Safety Report 11619845 (Version 1)
Quarter: 2015Q4

REPORT INFORMATION
  Report Type: Spontaneous
  Country: DE (occurrence: DE)
  Receive Date: 20151012
  Receipt Date: 20151012
  Transmission Date: 20160304
  Serious: Yes (Hospitalization)
  Sender: FDA-Public Use
  Company Number: DE-ELI_LILLY_AND_COMPANY-DE201510000114

PATIENT
  Sex: Male

DRUGS (2)
  1. EFIENT [Suspect]
     Active Substance: PRASUGREL HYDROCHLORIDE
     Indication: MYOCARDIAL INFARCTION
     Dosage: 10 MG, UNKNOWN
     Route: 048
     Dates: start: 2015
  2. AAS [Suspect]
     Active Substance: ASPIRIN
     Indication: MYOCARDIAL INFARCTION
     Dosage: 100 MG, UNKNOWN
     Route: 048
     Dates: start: 2015

REACTIONS (1)
  - Haemorrhagic erosive gastritis [Unknown]

NARRATIVE: CASE EVENT DATE: 201509
